FAERS Safety Report 25210856 (Version 1)
Quarter: 2025Q2

REPORT INFORMATION
  Report Type: Spontaneous
  Country: US (occurrence: US)
  Receive Date: 20250417
  Receipt Date: 20250417
  Transmission Date: 20250716
  Serious: No
  Sender: PFIZER
  Company Number: US-PFIZER INC-202500078688

PATIENT
  Sex: Female

DRUGS (2)
  1. TUKYSA [Suspect]
     Active Substance: TUCATINIB
     Indication: Colorectal cancer metastatic
  2. HERCEPTIN [Suspect]
     Active Substance: TRASTUZUMAB
     Indication: Colorectal cancer metastatic

REACTIONS (1)
  - Headache [Unknown]
